FAERS Safety Report 7113321-9 (Version None)
Quarter: 2010Q4

REPORT INFORMATION
  Report Type: 
  Country: None (occurrence: None)
  Receive Date: 20101119
  Receipt Date: 20100908
  Transmission Date: 20110411
  Serious: No
  Sender: FDA-Public Use
  Company Number: A0880298A

PATIENT
  Age: 53 Year
  Sex: Female

DRUGS (16)
  1. WELLBUTRIN SR [Suspect]
     Indication: DEPRESSION
     Dosage: 200MG TWICE PER DAY
     Route: 048
     Dates: start: 20081001
  2. CELEBREX [Concomitant]
  3. COZAAR [Concomitant]
  4. FLEXERIL [Concomitant]
  5. GLUCOPHAGE [Concomitant]
  6. HUMIRA [Concomitant]
  7. LEVOXYL [Concomitant]
  8. LEXAPRO [Concomitant]
  9. METHOTREXATE [Concomitant]
  10. PRILOSEC [Concomitant]
  11. REQUIP [Concomitant]
  12. TRICOR [Concomitant]
  13. VYTORIN [Concomitant]
  14. VALTREX [Concomitant]
  15. XANAX [Concomitant]
  16. VICODIN [Concomitant]

REACTIONS (3)
  - DRY MOUTH [None]
  - SLEEP TALKING [None]
  - VOCAL CORD DISORDER [None]
